FAERS Safety Report 16206298 (Version 1)
Quarter: 2019Q2

REPORT INFORMATION
  Report Type: Spontaneous
  Country: US (occurrence: US)
  Receive Date: 20190416
  Receipt Date: 20190416
  Transmission Date: 20190711
  Serious: Yes (Hospitalization)
  Sender: FDA-Public Use
  Company Number: None

PATIENT
  Sex: Male

DRUGS (9)
  1. INVEGA [Suspect]
     Active Substance: PALIPERIDONE
     Indication: SCHIZOAFFECTIVE DISORDER
  2. ZOLPIDEM 10MG TABLETS [Concomitant]
     Dates: start: 20190217
  3. INVEGA [Suspect]
     Active Substance: PALIPERIDONE
     Indication: BIPOLAR DISORDER
  4. DIVALPROEX 500MG TABLETS [Concomitant]
     Dates: start: 20190408
  5. QUETIAPINE 400MG TABLETS [Concomitant]
     Dates: start: 20181022
  6. OXCARBAZEPINE 600MG TABLETS [Concomitant]
     Dates: start: 20190313
  7. PALIPERIDONE 9MG ER TABLETS [Concomitant]
     Dates: start: 20190226
  8. TRAZADONE 100MG TABLETS [Concomitant]
     Dates: start: 20190225
  9. LISINOPRIL 5 MG TABLETS [Concomitant]
     Dates: start: 20190113

REACTIONS (2)
  - Aggression [None]
  - Product dose omission [None]
